FAERS Safety Report 21710191 (Version 1)
Quarter: 2022Q4

REPORT INFORMATION
  Report Type: Spontaneous
  Country: IT (occurrence: IT)
  Receive Date: 20221211
  Receipt Date: 20221211
  Transmission Date: 20230112
  Serious: Yes (Hospitalization)
  Sender: FDA-Public Use
  Company Number: None

PATIENT
  Age: 31 Year
  Sex: Female

DRUGS (2)
  1. DEFERASIROX [Suspect]
     Active Substance: DEFERASIROX
     Indication: Overchelation
     Dosage: 360 MG 1CP /DIE
     Route: 048
     Dates: start: 20220930, end: 20221030
  2. XANAX [Concomitant]
     Active Substance: ALPRAZOLAM
     Indication: Visual pathway disorder
     Dosage: UNK
     Route: 048

REACTIONS (3)
  - Hyperpyrexia [Recovered/Resolved]
  - Hepatitis acute [Recovering/Resolving]
  - Erythema [Recovering/Resolving]

NARRATIVE: CASE EVENT DATE: 20221024
